FAERS Safety Report 14776867 (Version 1)
Quarter: 2018Q2

REPORT INFORMATION
  Report Type: Spontaneous
  Country: PL (occurrence: PL)
  Receive Date: 20180419
  Receipt Date: 20180419
  Transmission Date: 20180711
  Serious: Yes (Other)
  Sender: FDA-Public Use
  Company Number: PL-ACCORD-065945

PATIENT
  Age: 26 Year
  Sex: Male

DRUGS (4)
  1. CISPLATIN. [Suspect]
     Active Substance: CISPLATIN
     Indication: BONE GIANT CELL TUMOUR
  2. DOXORUBICIN [Suspect]
     Active Substance: DOXORUBICIN
     Indication: BONE GIANT CELL TUMOUR
  3. DENOSUMAB [Suspect]
     Active Substance: DENOSUMAB
     Indication: BONE GIANT CELL TUMOUR
  4. HOLOXAN [Suspect]
     Active Substance: IFOSFAMIDE
     Indication: BONE GIANT CELL TUMOUR

REACTIONS (3)
  - Off label use [Unknown]
  - Cerebral ischaemia [Unknown]
  - Malignant neoplasm progression [Unknown]
